FAERS Safety Report 9513062 (Version 2)
Quarter: 2013Q3

REPORT INFORMATION
  Report Type: Report from Study
  Country: FR (occurrence: FR)
  Receive Date: 20130910
  Receipt Date: 20130913
  Transmission Date: 20140515
  Serious: Yes (Death, Hospitalization)
  Sender: FDA-Public Use
  Company Number: FR-PFIZER INC-2013256380

PATIENT
  Age: 69 Year
  Sex: Female

DRUGS (1)
  1. CRIZOTINIB [Suspect]
     Dosage: SINGLE DOSE
     Dates: start: 20121220, end: 20121220

REACTIONS (2)
  - Death [Fatal]
  - Cardiopulmonary failure [Unknown]
